FAERS Safety Report 20116116 (Version 1)
Quarter: 2021Q4

REPORT INFORMATION
  Report Type: Spontaneous
  Country: US (occurrence: US)
  Receive Date: 20211126
  Receipt Date: 20211126
  Transmission Date: 20220304
  Serious: Yes (Other)
  Sender: FDA-Public Use
  Company Number: US-BAUSCH-BL-2021-038763

PATIENT
  Age: 78 Year

DRUGS (2)
  1. VASOTEC [Suspect]
     Active Substance: ENALAPRIL MALEATE
     Indication: Product used for unknown indication
     Dosage: 5 MG OR 2.5 MG, TAKING FOR 35 YEARS
     Route: 065
     Dates: end: 202104
  2. DYAZIDE [Concomitant]
     Active Substance: HYDROCHLOROTHIAZIDE\TRIAMTERENE
     Indication: Product used for unknown indication
     Dosage: 37.5-25 MG

REACTIONS (6)
  - Renal impairment [Unknown]
  - Bladder disorder [Unknown]
  - Back disorder [Unknown]
  - Blood test abnormal [Unknown]
  - Product availability issue [Unknown]
  - Therapy interrupted [Unknown]

NARRATIVE: CASE EVENT DATE: 20210101
